FAERS Safety Report 4726379-9 (Version None)
Quarter: 2005Q3

REPORT INFORMATION
  Report Type: 
  Country: None (occurrence: None)
  Receive Date: 20050727
  Receipt Date: 20050715
  Transmission Date: 20060218
  Serious: Yes (Other)
  Sender: FDA-Public Use
  Company Number: 2005101899

PATIENT
  Age: 23 Year
  Sex: Male
  Weight: 61.2356 kg

DRUGS (1)
  1. DRAMAMINE [Suspect]
     Dosage: 25 TABLETS AT ONCE, ORAL
     Route: 048
     Dates: start: 20050714, end: 20050714

REACTIONS (1)
  - HALLUCINATION [None]
